FAERS Safety Report 13504434 (Version 3)
Quarter: 2017Q3

REPORT INFORMATION
  Report Type: Spontaneous
  Country: US (occurrence: US)
  Receive Date: 20170502
  Receipt Date: 20170721
  Transmission Date: 20171127
  Serious: No
  Sender: FDA-Public Use
  Company Number: US-TEVA-760961ACC

PATIENT
  Age: 34 Year
  Sex: Female

DRUGS (5)
  1. PRILOSEC [Concomitant]
     Active Substance: OMEPRAZOLE MAGNESIUM
  2. LAMISIL [Concomitant]
     Active Substance: TERBINAFINE HYDROCHLORIDE
  3. EFFEXOR XR [Concomitant]
     Active Substance: VENLAFAXINE HYDROCHLORIDE
  4. COPAXONE [Suspect]
     Active Substance: GLATIRAMER ACETATE
     Indication: MULTIPLE SCLEROSIS
     Dosage: 20 MILLIGRAM/MILLILITERS DAILY;
     Route: 058
     Dates: start: 20141107
  5. LAMICTAL [Concomitant]
     Active Substance: LAMOTRIGINE

REACTIONS (6)
  - Injection site reaction [Not Recovered/Not Resolved]
  - Injection site urticaria [Not Recovered/Not Resolved]
  - Hypoaesthesia [Not Recovered/Not Resolved]
  - Injection site erythema [Not Recovered/Not Resolved]
  - Injection site pruritus [Not Recovered/Not Resolved]
  - Influenza like illness [Not Recovered/Not Resolved]

NARRATIVE: CASE EVENT DATE: 20170601
